FAERS Safety Report 9470800 (Version 1)
Quarter: 2013Q3

REPORT INFORMATION
  Report Type: Spontaneous
  Country: CH (occurrence: CH)
  Receive Date: 20130822
  Receipt Date: 20130822
  Transmission Date: 20140515
  Serious: Yes (Hospitalization)
  Sender: FDA-Public Use
  Company Number: CH-ASTRAZENECA-2013SE63828

PATIENT
  Age: 59 Year
  Sex: Female

DRUGS (3)
  1. PROPOFOL [Suspect]
     Route: 065
     Dates: start: 20130709, end: 20130709
  2. NAROPIN [Suspect]
     Dosage: 0.5 %, 30 MILLILITERS, 150 MILLIGRAMS.
     Route: 065
     Dates: start: 20130709, end: 20130709
  3. NALOXONE HYDROCHLORIDE [Concomitant]
     Dates: start: 20130709, end: 20130709

REACTIONS (3)
  - Hypoxic-ischaemic encephalopathy [Recovered/Resolved]
  - Seizure anoxic [Recovered/Resolved]
  - Loss of consciousness [Recovered/Resolved]
